FAERS Safety Report 8223272-4 (Version None)
Quarter: 2012Q1

REPORT INFORMATION
  Report Type: 
  Country: None (occurrence: None)
  Receive Date: 20120321
  Receipt Date: 20120305
  Transmission Date: 20120608
  Serious: Yes (Death, Other)
  Sender: FDA-Public Use
  Company Number: IT-ROCHE-1046035

PATIENT

DRUGS (8)
  1. MABTHERA [Suspect]
     Indication: MANTLE CELL LYMPHOMA
     Dosage: ON DAY 1
  2. VINCRISTINE [Suspect]
     Indication: MANTLE CELL LYMPHOMA
     Dosage: DAYS 4 AND 11, AT A MAXIMUM DOSE OF 2 MG
  3. METHOTREXATE [Suspect]
     Dosage: FOR 24 HOURS CONTINUOUS INFUSION DAY 1
  4. DEXAMETHASONE [Suspect]
     Indication: MANTLE CELL LYMPHOMA
     Dosage: DAYS 1-4 AND 11-14
  5. CYTARABINE [Suspect]
     Indication: MANTLE CELL LYMPHOMA
     Dosage: DAYS 2 TO 3
  6. DOXORUBICIN HYDROCHLORIDE [Suspect]
     Indication: MANTLE CELL LYMPHOMA
     Dosage: DAYS 4 TO 5
  7. CYCLOPHOSPHAMIDE [Suspect]
     Indication: MANTLE CELL LYMPHOMA
     Dosage: DAYS 1 TO 3
  8. METHOTREXATE [Suspect]
     Indication: MANTLE CELL LYMPHOMA
     Dosage: BOLUS INFUSION DAY 1

REACTIONS (16)
  - ANAEMIA [None]
  - ARRHYTHMIA [None]
  - ATRIAL FIBRILLATION [None]
  - SINUS BRADYCARDIA [None]
  - EPIDERMOLYSIS [None]
  - CARDIAC FAILURE [None]
  - ASTRINGENT THERAPY [None]
  - ILEUS PARALYTIC [None]
  - THROMBOCYTOPENIA [None]
  - PANCREATITIS ACUTE [None]
  - PYREXIA [None]
  - SEPSIS [None]
  - INFUSION RELATED REACTION [None]
  - BRONCHOPULMONARY ASPERGILLOSIS [None]
  - NEUTROPENIA [None]
  - NEUROPATHY PERIPHERAL [None]
